FAERS Safety Report 25348498 (Version 1)
Quarter: 2025Q2

REPORT INFORMATION
  Report Type: Spontaneous
  Country: US (occurrence: None)
  Receive Date: 20250522
  Receipt Date: 20250522
  Transmission Date: 20250716
  Serious: Yes (Life-Threatening, Disabling, Other)
  Sender: FDA-CTU
  Company Number: None

PATIENT
  Age: 55 Year
  Sex: Female

DRUGS (1)
  1. CITALOPRAM [Suspect]
     Active Substance: CITALOPRAM
     Indication: Adjustment disorder with depressed mood
     Route: 048
     Dates: start: 20000103, end: 20241215

REACTIONS (21)
  - Withdrawal syndrome [None]
  - Sleep deficit [None]
  - Palpitations [None]
  - Abnormal behaviour [None]
  - Photophobia [None]
  - Hyperacusis [None]
  - Parosmia [None]
  - Stress [None]
  - Cognitive disorder [None]
  - Amnesia [None]
  - Dissociation [None]
  - Diarrhoea [None]
  - Constipation [None]
  - Irritability [None]
  - Anger [None]
  - Crying [None]
  - Emotional poverty [None]
  - Tinnitus [None]
  - Visual impairment [None]
  - Vision blurred [None]
  - Supraventricular tachycardia [None]

NARRATIVE: CASE EVENT DATE: 20241215
